FAERS Safety Report 4682579-8 (Version None)
Quarter: 2005Q2

REPORT INFORMATION
  Report Type: 
  Country: None (occurrence: None)
  Receive Date: 20050531
  Receipt Date: 20050329
  Transmission Date: 20051028
  Serious: No
  Sender: FDA-Public Use
  Company Number: 2005BI006624

PATIENT
  Age: 66 Year
  Sex: Male

DRUGS (3)
  1. AMEVIVE [Suspect]
     Indication: PSORIASIS
     Dates: start: 20041115, end: 20041213
  2. LEVO-DOPA [Concomitant]
  3. METHOTREXATE [Concomitant]

REACTIONS (1)
  - RASH [None]
